FAERS Safety Report 13590375 (Version 1)
Quarter: 2017Q2

REPORT INFORMATION
  Report Type: Spontaneous
  Country: US (occurrence: US)
  Receive Date: 20170529
  Receipt Date: 20170529
  Transmission Date: 20170830
  Serious: Yes (Hospitalization, Disabling)
  Sender: FDA-Public Use
  Company Number: None

PATIENT
  Age: 58 Year
  Sex: Female
  Weight: 72 kg

DRUGS (5)
  1. LEVOTHYROXIN [Suspect]
     Active Substance: LEVOTHYROXINE
     Indication: HYPOTHYROIDISM
     Dosage: ?          OTHER STRENGTH:MCG;QUANTITY:1 TABLET(S);OTHER FREQUENCY:EVERY OTHER DAY;?
     Route: 048
     Dates: start: 20140331, end: 20170511
  2. VITAMIN D [Concomitant]
     Active Substance: CHOLECALCIFEROL
  3. NORFLEX [Concomitant]
     Active Substance: ORPHENADRINE CITRATE
  4. IMITREX [Concomitant]
     Active Substance: SUMATRIPTAN SUCCINATE
  5. LEVOTHYROXIN [Concomitant]
     Active Substance: LEVOTHYROXINE
     Indication: HYPOTHYROIDISM
     Dosage: ?          OTHER STRENGTH:MCG;QUANTITY:1 TABLET(S);OTHER FREQUENCY:EVERY OTHER DAY;?
     Route: 048
     Dates: start: 20140331, end: 20170511

REACTIONS (10)
  - Alopecia [None]
  - Feeling abnormal [None]
  - Change of bowel habit [None]
  - Contusion [None]
  - Hypotension [None]
  - Malaise [None]
  - Fatigue [None]
  - Joint swelling [None]
  - Arthralgia [None]
  - Product quality issue [None]

NARRATIVE: CASE EVENT DATE: 20160614
